FAERS Safety Report 9687857 (Version 1)
Quarter: 2013Q4

REPORT INFORMATION
  Report Type: Spontaneous
  Country: US (occurrence: US)
  Receive Date: 20131114
  Receipt Date: 20131114
  Transmission Date: 20140711
  Serious: Yes (Hospitalization)
  Sender: FDA-Public Use
  Company Number: US-JNJFOC-20131103395

PATIENT
  Age: 47 Year
  Sex: Female
  Weight: 54.43 kg

DRUGS (25)
  1. UNSPECIFIED FENTANYL [Suspect]
     Indication: ARTHRITIS
     Route: 062
  2. UNSPECIFIED FENTANYL [Suspect]
     Indication: ARTHRITIS
     Route: 062
  3. UNSPECIFIED FENTANYL [Suspect]
     Indication: ARTHRITIS
     Route: 062
     Dates: start: 2003
  4. UNSPECIFIED FENTANYL [Suspect]
     Indication: LYME DISEASE
     Route: 062
  5. UNSPECIFIED FENTANYL [Suspect]
     Indication: LYME DISEASE
     Route: 062
  6. UNSPECIFIED FENTANYL [Suspect]
     Indication: LYME DISEASE
     Route: 062
     Dates: start: 2003
  7. SANDOZ FENTANYL TRANSDERMAL SYSTEM [Suspect]
     Indication: ARTHRITIS
     Route: 062
  8. SANDOZ FENTANYL TRANSDERMAL SYSTEM [Suspect]
     Indication: LYME DISEASE
     Route: 062
  9. GENERIC FENTANYL PATCH [Suspect]
     Indication: ARTHRITIS
     Route: 062
  10. GENERIC FENTANYL PATCH [Suspect]
     Indication: LYME DISEASE
     Route: 062
  11. GENERIC FENTANYL PATCH [Suspect]
     Indication: ARTHRITIS
     Route: 062
     Dates: start: 201310, end: 201310
  12. GENERIC FENTANYL PATCH [Suspect]
     Indication: LYME DISEASE
     Route: 062
     Dates: start: 201310, end: 201310
  13. MYLAN FENTANYL TRANSDERMAL SYSTEM [Suspect]
     Indication: ARTHRITIS
     Route: 062
  14. MYLAN FENTANYL TRANSDERMAL SYSTEM [Suspect]
     Indication: LYME DISEASE
     Route: 062
  15. DEMEROL [Suspect]
     Indication: PRODUCT USED FOR UNKNOWN INDICATION
     Route: 065
  16. DILAUDID [Suspect]
     Indication: PAIN
     Route: 065
  17. MORPHINE [Suspect]
     Indication: PAIN
     Route: 065
  18. PREDNISONE [Suspect]
     Indication: RASH
     Route: 065
     Dates: start: 201310, end: 201310
  19. FLUCONAZOLE [Concomitant]
     Indication: PRODUCT USED FOR UNKNOWN INDICATION
     Route: 065
  20. KLONOPIN [Concomitant]
     Indication: PRODUCT USED FOR UNKNOWN INDICATION
     Route: 048
  21. OXYCODONE HCL [Concomitant]
     Indication: BREAKTHROUGH PAIN
     Route: 048
  22. ORPHENADRINE [Concomitant]
     Indication: PRODUCT USED FOR UNKNOWN INDICATION
     Route: 048
  23. PHENERGAN [Concomitant]
     Indication: NAUSEA
     Route: 054
  24. ONDASETRON HCL [Concomitant]
     Indication: NAUSEA
     Route: 065
  25. MAXALT MLT [Concomitant]
     Indication: MIGRAINE
     Route: 065

REACTIONS (9)
  - Renal disorder [Unknown]
  - Loss of consciousness [Unknown]
  - Rash [Unknown]
  - Investigation [Unknown]
  - Drug effect increased [Unknown]
  - Stress [Not Recovered/Not Resolved]
  - Drug ineffective [Not Recovered/Not Resolved]
  - Adverse event [Not Recovered/Not Resolved]
  - Abnormal behaviour [Unknown]
